FAERS Safety Report 8423003 (Version 3)
Quarter: 2013Q2

REPORT INFORMATION
  Report Type: Report from Study
  Country: DE (occurrence: DE)
  Receive Date: 20120223
  Receipt Date: 20130523
  Transmission Date: 20140414
  Serious: Yes (Hospitalization, Other)
  Sender: FDA-Public Use
  Company Number: DE-ABBOTT-12P-062-0904452-00

PATIENT
  Age: 61 Year
  Sex: Female

DRUGS (16)
  1. HUMIRA 40 MG/ 0.8 ML PRE-FILLED SYRINGE [Suspect]
     Indication: RHEUMATOID ARTHRITIS
     Route: 058
     Dates: start: 200806, end: 20110419
  2. HUMIRA 40 MG/ 0.8 ML PRE-FILLED SYRINGE [Suspect]
     Dates: start: 20110520, end: 20110827
  3. HUMIRA 40 MG/ 0.8 ML PRE-FILLED SYRINGE [Suspect]
     Dates: start: 20111026, end: 201203
  4. HUMIRA 40 MG/ 0.8 ML PRE-FILLED SYRINGE [Suspect]
     Route: 058
     Dates: start: 201301
  5. HUMIRA 40 MG/ 0.8 ML PRE-FILLED SYRINGE [Suspect]
     Route: 058
     Dates: start: 201204, end: 201211
  6. HUMIRA 40 MG/ 0.8 ML PRE-FILLED SYRINGE [Suspect]
     Dates: start: 20121204
  7. MTX [Suspect]
     Indication: RHEUMATOID ARTHRITIS
     Route: 048
     Dates: start: 2009, end: 20110424
  8. MTX [Suspect]
     Dates: start: 20110520, end: 20110827
  9. MTX [Suspect]
     Dates: start: 20111026
  10. IDEOS [Suspect]
     Indication: OSTEOPOROSIS
     Route: 048
     Dates: end: 201209
  11. FORSAMAX [Concomitant]
     Indication: OSTEOPOROSIS
     Route: 048
  12. DEKRISTOL [Concomitant]
     Indication: OSTEOPOROSIS
     Route: 048
  13. CALCIUM SANDOZ [Concomitant]
     Indication: PRODUCT USED FOR UNKNOWN INDICATION
  14. VOLTAREN RESINAT [Concomitant]
     Indication: PRODUCT USED FOR UNKNOWN INDICATION
  15. PANTOPRAZOLE (PANTOZOL) [Concomitant]
     Indication: PRODUCT USED FOR UNKNOWN INDICATION
  16. METAMIZOLE (NOVALGIN) [Concomitant]
     Indication: PRODUCT USED FOR UNKNOWN INDICATION

REACTIONS (17)
  - Foot deformity [Recovered/Resolved]
  - Arthritis [Recovered/Resolved]
  - Synovitis [Recovered/Resolved]
  - Bursitis [Recovered/Resolved]
  - Acquired claw toe [Recovered/Resolved]
  - Post procedural infection [Recovered/Resolved]
  - Localised infection [Recovered/Resolved]
  - Eczema [Recovered/Resolved]
  - Conjunctivitis [Recovered/Resolved]
  - Iritis [Recovered/Resolved]
  - Nephrolithiasis [Recovered/Resolved]
  - Uterine leiomyoma [Unknown]
  - Foot deformity [Recovered/Resolved]
  - Foot deformity [Recovered/Resolved]
  - Exostosis [Recovered/Resolved]
  - Foot deformity [Recovered/Resolved]
  - Cyst [Unknown]
